FAERS Safety Report 8511472-5 (Version None)
Quarter: 2012Q2

REPORT INFORMATION
  Report Type: 
  Country: None (occurrence: None)
  Receive Date: 20120629
  Receipt Date: 20120628
  Transmission Date: 20120825
  Serious: Yes (Death, Other)
  Sender: FDA-Public Use
  Company Number: 2009SP034672

PATIENT
  Age: 69 Year
  Sex: Male
  Weight: 64 kg

DRUGS (16)
  1. TEMODAL [Suspect]
     Indication: BRAIN NEOPLASM
     Dosage: 150;200 MG/M2, QD, PO
     Route: 048
     Dates: start: 20061212, end: 20061216
  2. TEMODAL [Suspect]
     Indication: BRAIN NEOPLASM
     Dosage: 150;200 MG/M2, QD, PO
     Route: 048
     Dates: start: 20080527, end: 20081220
  3. TEMODAL [Suspect]
     Indication: BRAIN NEOPLASM
     Dosage: 150;200 MG/M2, QD, PO
     Route: 048
     Dates: start: 20061014, end: 20061018
  4. TEMODAL [Suspect]
     Indication: BRAIN NEOPLASM
     Dosage: 150;200 MG/M2, QD, PO
     Route: 048
     Dates: start: 20070814, end: 20070818
  5. TEMODAL [Suspect]
     Indication: BRAIN NEOPLASM
     Dosage: 150;200 MG/M2, QD, PO
     Route: 048
     Dates: start: 20070508, end: 20070512
  6. TEMODAL [Suspect]
     Indication: BRAIN NEOPLASM
     Dosage: 150;200 MG/M2, QD, PO
     Route: 048
     Dates: start: 20070710, end: 20070714
  7. TEMODAL [Suspect]
     Indication: BRAIN NEOPLASM
     Dosage: 150;200 MG/M2, QD, PO
     Route: 048
     Dates: start: 20070109, end: 20070113
  8. TEMODAL [Suspect]
     Indication: BRAIN NEOPLASM
     Dosage: 150;200 MG/M2, QD, PO
     Route: 048
     Dates: start: 20070206, end: 20070210
  9. TEMODAL [Suspect]
     Indication: BRAIN NEOPLASM
     Dosage: 150;200 MG/M2, QD, PO
     Route: 048
     Dates: start: 20070911, end: 20070915
  10. TEMODAL [Suspect]
     Indication: BRAIN NEOPLASM
     Dosage: 150;200 MG/M2, QD, PO
     Route: 048
     Dates: start: 20071023, end: 20080412
  11. TEMODAL [Suspect]
     Indication: BRAIN NEOPLASM
     Dosage: 150;200 MG/M2, QD, PO
     Route: 048
     Dates: start: 20061114, end: 20061118
  12. TEMODAL [Suspect]
     Indication: BRAIN NEOPLASM
     Dosage: 150;200 MG/M2, QD, PO
     Route: 048
     Dates: start: 20070612, end: 20070616
  13. TEMODAL [Suspect]
     Indication: BRAIN NEOPLASM
     Dosage: 150;200 MG/M2, QD, PO
     Route: 048
     Dates: start: 20070410, end: 20070414
  14. TEMODAL [Suspect]
     Indication: BRAIN NEOPLASM
     Dosage: 150;200 MG/M2, QD, PO
     Route: 048
     Dates: start: 20070306, end: 20070310
  15. TEGRETOL [Concomitant]
  16. DEPAKENE [Concomitant]

REACTIONS (3)
  - DISEASE PROGRESSION [None]
  - HIP FRACTURE [None]
  - FALL [None]
